FAERS Safety Report 16564760 (Version 1)
Quarter: 2019Q3

REPORT INFORMATION
  Report Type: Spontaneous
  Country: US (occurrence: US)
  Receive Date: 20190712
  Receipt Date: 20190712
  Transmission Date: 20191004
  Serious: Yes (Other)
  Sender: FDA-Public Use
  Company Number: US-JNJFOC-20190712414

PATIENT
  Age: 35 Year
  Sex: Female
  Weight: 123.49 kg

DRUGS (2)
  1. HYDROCORTISONE. [Concomitant]
     Active Substance: HYDROCORTISONE
     Route: 061
  2. STELARA [Suspect]
     Active Substance: USTEKINUMAB
     Indication: CROHN^S DISEASE
     Route: 042
     Dates: start: 20190625

REACTIONS (4)
  - Anal fissure [Unknown]
  - Feeling hot [Unknown]
  - Throat irritation [Unknown]
  - Erythema [Unknown]

NARRATIVE: CASE EVENT DATE: 20190626
